FAERS Safety Report 20796865 (Version 1)
Quarter: 2022Q2

REPORT INFORMATION
  Report Type: Spontaneous
  Country: KR (occurrence: None)
  Receive Date: 20220506
  Receipt Date: 20220506
  Transmission Date: 20220721
  Serious: Yes (Other)
  Sender: FDA-Public Use
  Company Number: 2022A170859

PATIENT
  Sex: Male

DRUGS (1)
  1. GEFITINIB [Suspect]
     Active Substance: GEFITINIB
     Dosage: UNKNOWN
     Route: 048
     Dates: start: 201801, end: 202104

REACTIONS (1)
  - Disease progression [Unknown]
